FAERS Safety Report 13243749 (Version 1)
Quarter: 2017Q1

REPORT INFORMATION
  Report Type: Spontaneous
  Country: US (occurrence: US)
  Receive Date: 20170217
  Receipt Date: 20170217
  Transmission Date: 20170428
  Serious: Yes (Hospitalization)
  Sender: FDA-Public Use
  Company Number: None

PATIENT
  Age: 56 Year
  Sex: Female
  Weight: 53.12 kg

DRUGS (4)
  1. NAB-PACLITAXEL [Suspect]
     Active Substance: PACLITAXEL
     Dosage: 28DAYCYCLE IV
     Route: 042
  2. GEMCITABINE [Suspect]
     Active Substance: GEMCITABINE\GEMCITABINE HYDROCHLORIDE
     Indication: PANCREATIC CARCINOMA
     Dosage: 28DAYCYCLE IV
     Route: 042
     Dates: start: 20160330, end: 20160511
  3. 5-FU [Suspect]
     Active Substance: FLUOROURACIL
     Dosage: 5DAY/WEEK IV PUMP
     Route: 042
  4. CHEMORADIATION [Suspect]
     Active Substance: UNSPECIFIED INGREDIENT
     Indication: PANCREATIC CARCINOMA
     Dosage: 5DAY/WEEK EXTERNAL BEAM
     Dates: start: 20160607, end: 20160715

REACTIONS (6)
  - Malnutrition [None]
  - Gastrointestinal haemorrhage [None]
  - Deep vein thrombosis [None]
  - Gastroenteritis radiation [None]
  - Asthenia [None]
  - Normochromic normocytic anaemia [None]

NARRATIVE: CASE EVENT DATE: 20170116
